FAERS Safety Report 12914707 (Version 1)
Quarter: 2016Q4

REPORT INFORMATION
  Report Type: Spontaneous
  Country: US (occurrence: US)
  Receive Date: 20161106
  Receipt Date: 20161106
  Transmission Date: 20170207
  Serious: No
  Sender: FDA-Public Use
  Company Number: US-RELYPSA-RLY2016002018

PATIENT
  Sex: Male

DRUGS (1)
  1. VELTASSA [Suspect]
     Active Substance: PATIROMER
     Indication: HYPERKALAEMIA
     Dosage: 8.4 G, QD
     Route: 048
     Dates: start: 201606, end: 201608

REACTIONS (7)
  - Dizziness [Recovered/Resolved]
  - Nightmare [Recovered/Resolved]
  - Hallucination, visual [Recovered/Resolved]
  - Constipation [Recovered/Resolved]
  - Feeling abnormal [Recovered/Resolved]
  - Faeces hard [Recovered/Resolved]
  - Insomnia [Recovered/Resolved]

NARRATIVE: CASE EVENT DATE: 2016
